FAERS Safety Report 7327735-5 (Version None)
Quarter: 2011Q1

REPORT INFORMATION
  Report Type: 
  Country: None (occurrence: None)
  Receive Date: 20110303
  Receipt Date: 20110222
  Transmission Date: 20110831
  Serious: Yes (Death, Hospitalization, Other)
  Sender: FDA-Public Use
  Company Number: JP-BAYER-2010-001890

PATIENT
  Sex: Female
  Weight: 43 kg

DRUGS (78)
  1. ADELAVIN [Concomitant]
     Dosage: DAILY DOSE 2 ML
     Route: 042
     Dates: start: 20110112, end: 20110112
  2. ALDACTONE [Concomitant]
     Indication: POLYURIA
     Dosage: 50 MG, QD
     Route: 048
     Dates: start: 20101101, end: 20110206
  3. VEEN D [Concomitant]
     Dosage: 1500 ML, QD
     Route: 042
     Dates: start: 20110112
  4. CEFOCEF [Concomitant]
     Dosage: DAILY DOSE 1 G
     Route: 042
     Dates: start: 20110112
  5. SOLDEM 3A [Concomitant]
     Indication: FLUID REPLACEMENT
     Dosage: 200 ML, QD
     Route: 042
     Dates: start: 20101101
  6. VITAMEDIN [Concomitant]
     Dosage: 1 DF, QD
     Route: 042
     Dates: start: 20110113
  7. LOXONIN [Concomitant]
     Indication: ANALGESIC THERAPY
     Dosage: 60 MG, QD
     Route: 048
     Dates: start: 20101108, end: 20101108
  8. ALBUMIN HUMAN [ALBUMEN] [Concomitant]
     Dosage: 100 ML, UNK
     Route: 042
     Dates: start: 20101101, end: 20101103
  9. HEPARIN SODIUM [Concomitant]
     Dosage: 10 ML, UNK
     Route: 042
     Dates: start: 20110112, end: 20110112
  10. NEXAVAR [Suspect]
     Dosage: 400 MG, QD
     Route: 048
     Dates: start: 20101123, end: 20110112
  11. ADELAVIN [Concomitant]
     Dosage: DAILY DOSE 1 ML
     Route: 042
     Dates: start: 20110113
  12. GASMOTIN [Concomitant]
     Indication: ABDOMINAL DISCOMFORT
     Dosage: 15 MG, QD
     Route: 048
     Dates: start: 20101106, end: 20110115
  13. BARACLUDE [Concomitant]
     Indication: HEPATITIS B
     Dosage: 0.5 MG, UNK
     Route: 048
     Dates: start: 20101101, end: 20110204
  14. VITAMEDIN [Concomitant]
     Dosage: DAILY DOSE 2 DF
     Route: 042
     Dates: start: 20110112, end: 20110112
  15. SODIUM CHLORIDE [Concomitant]
     Indication: MEDICATION DILUTION
     Dosage: DAILY DOSE 100 ML
     Route: 042
     Dates: start: 20110112
  16. ISOTONIC SODIUM CHLORIDE SOLUTION KIT [Concomitant]
     Indication: MEDICATION DILUTION
     Dosage: DAILY DOSE 100 ML
     Route: 042
     Dates: start: 20110112
  17. HEPARIN NA LOCK [Concomitant]
     Dosage: DAILY DOSE 10 ML
     Route: 042
     Dates: start: 20101101
  18. HEPARIN NA LOCK [Concomitant]
     Dosage: DAILY DOSE 10 ML
     Route: 042
     Dates: start: 20110112, end: 20110112
  19. RED CELLS CONCENTRATES-LEUKOCYTES REDUCED [Concomitant]
     Dosage: DAILY DOSE 4 U
     Route: 042
     Dates: start: 20101118, end: 20101118
  20. NEXAVAR [Suspect]
     Indication: HEPATIC NEOPLASM MALIGNANT
     Dosage: 400 MG, QD
     Route: 048
     Dates: start: 20101102, end: 20110112
  21. VEEN D [Concomitant]
     Indication: FLUID REPLACEMENT
     Dosage: 500 ML, QD
     Route: 042
     Dates: start: 20101201, end: 20101201
  22. SOLDEM 3A [Concomitant]
     Dosage: DAILY DOSE 200 ML
     Route: 042
     Dates: start: 20110112, end: 20110112
  23. TATHION [Concomitant]
     Dosage: 100 MG, QD
     Route: 042
     Dates: start: 20110113
  24. LASIX [Concomitant]
     Dosage: 40 MG, QD
     Route: 042
     Dates: start: 20101101, end: 20101103
  25. LOXONIN [Concomitant]
     Dosage: 180 MG, QD
     Route: 048
     Dates: start: 20101112
  26. NEO-MINOPHAGEN C [Concomitant]
     Indication: PROPHYLAXIS
     Dosage: 40 ML, QD
     Route: 042
     Dates: start: 20101101
  27. NEO-MINOPHAGEN C [Concomitant]
     Dosage: 4 DF, QD
     Route: 042
     Dates: start: 20110113
  28. NEO-MINOPHAGEN C [Concomitant]
     Dosage: DAILY DOSE 6 DF
     Route: 042
     Dates: start: 20110112, end: 20110112
  29. VOLTAREN [Concomitant]
     Indication: ANALGESIC THERAPY
     Dosage: DAILY DOSE 50 MG
     Route: 054
     Dates: start: 20101203, end: 20110116
  30. SODIUM CHLORIDE [Concomitant]
     Dosage: 20 ML, UNK
     Route: 042
     Dates: start: 20101122, end: 20101122
  31. UNCODEABLE ^UNCLASSIFIABLE^ [Concomitant]
     Indication: NUTRITIONAL SUPPORT
     Dosage: DAILY DOSE 1200 ML
     Dates: start: 20101126
  32. INDIGO CARMINE [Concomitant]
     Dosage: 20 MG, UNK
     Route: 042
     Dates: start: 20101122, end: 20101122
  33. VEEN-D [Concomitant]
     Dosage: 500 ML, QD
     Route: 042
     Dates: start: 20101201, end: 20101201
  34. SOLDEM 3A [Concomitant]
     Dosage: DAILY DOSE 200 ML
     Route: 042
     Dates: start: 20110112, end: 20110112
  35. DORMICUM [Concomitant]
     Indication: PREMEDICATION
     Dosage: 2.5 MG, QD
     Route: 042
     Dates: start: 20101122, end: 20101122
  36. VITAMEDIN [Concomitant]
     Indication: VITAMIN SUPPLEMENTATION
     Dosage: 1 DF, QD
     Route: 042
     Dates: start: 20101101
  37. RACOL [Concomitant]
     Indication: NUTRITIONAL SUPPORT
     Dosage: DAILY DOSE 1200 ML
     Route: 065
     Dates: start: 20101126, end: 20110206
  38. ALBUMIN (HUMAN) [Concomitant]
     Dosage: DAILY DOSE 100 ML
     Route: 042
     Dates: start: 20101101, end: 20101103
  39. ADELAVIN [Concomitant]
     Indication: LIVER DISORDER
     Dosage: 1 ML, QD
     Route: 042
     Dates: start: 20101101
  40. SWORD [Concomitant]
     Indication: INFLAMMATION
     Dosage: 200 MG, QD
     Route: 048
     Dates: start: 20100101, end: 20101105
  41. HERBAL PREPARATION [Concomitant]
     Indication: LIVER DISORDER
     Dosage: 7.5 G, QD
     Route: 048
     Dates: start: 20101101
  42. NAIXAN [Concomitant]
     Indication: TUMOUR ASSOCIATED FEVER
     Dosage: 300 MG, QD
     Route: 048
     Dates: start: 20100101, end: 20110206
  43. LASIX [Concomitant]
     Indication: POLYURIA
     Dosage: 40 MG, QD
     Route: 048
     Dates: start: 20101101, end: 20110206
  44. NEO-MINOPHAGEN C [Concomitant]
     Dosage: 6 DF, QD
     Route: 042
     Dates: start: 20110112, end: 20110112
  45. HEPARIN SODIUM [Concomitant]
     Dosage: 10 ML, UNK
     Route: 042
     Dates: start: 20101101
  46. RED BLOOD CELLS, CONCENTRATED [Concomitant]
     Dosage: 4 U, UNK
     Route: 042
     Dates: start: 20101118, end: 20101118
  47. VEEN-D [Concomitant]
     Dosage: DAILY DOSE 1500 ML
     Route: 042
     Dates: start: 20110112
  48. JUZEN-TAIHO-TO [Concomitant]
     Dosage: 7.5 G, QD
     Route: 048
     Dates: start: 20101101, end: 20101215
  49. INDIGOCARMINE [Concomitant]
     Dosage: DAILY DOSE 20 MG
     Route: 042
     Dates: start: 20101122, end: 20101122
  50. TATHION [Concomitant]
     Dosage: 200 MG, QD
     Route: 042
     Dates: start: 20110112, end: 20110112
  51. JUZENTAIHOTO [Concomitant]
     Dosage: 7.5 G, QD
     Route: 048
     Dates: start: 20101101
  52. PURSENNID [Concomitant]
     Indication: CONSTIPATION
     Dosage: 24 MG, QD
     Route: 048
     Dates: start: 20101106, end: 20101201
  53. MAGMITT [Concomitant]
     Indication: CONSTIPATION
     Dosage: 990 MG, QD
     Route: 048
     Dates: start: 20101106, end: 20110115
  54. NEO-MINOPHAGEN C [Concomitant]
     Dosage: DAILY DOSE 4 DF
     Route: 042
     Dates: start: 20110113
  55. PARIET [Concomitant]
     Indication: GASTRIC ULCER
     Dosage: 20 MG, QD
     Route: 048
     Dates: start: 20101117, end: 20101201
  56. UNCODEABLE ^UNCLASSIFIABLE^ [Concomitant]
     Indication: LIVER DISORDER
     Dosage: 7.5 G, QD
     Route: 048
     Dates: start: 20101101
  57. LEPETAN [Concomitant]
     Indication: ANALGESIC THERAPY
     Dosage: DAILY DOSE .2 MG
     Route: 054
     Dates: start: 20101203, end: 20101231
  58. ADELAVIN-NO.9 [Concomitant]
     Dosage: 1 ML, QD
     Route: 042
     Dates: start: 20101101
  59. NEXAVAR [Suspect]
     Dosage: 800 MG, QD
     Dates: start: 20101114
  60. UREPEARL [Concomitant]
     Dosage: UNK
     Route: 061
     Dates: start: 20101101, end: 20110112
  61. URSO 250 [Concomitant]
     Dosage: 600 MG, QD
     Route: 048
     Dates: start: 20101101, end: 20101215
  62. CRAVIT [Concomitant]
     Indication: INFLAMMATION
     Dosage: 500 MG, QD
     Route: 048
     Dates: start: 20101115, end: 20110206
  63. CEFOCEF [Concomitant]
     Indication: INFLAMMATION
     Dosage: 1 G, QD
     Route: 042
     Dates: start: 20101108, end: 20101114
  64. CEFOCEF [Concomitant]
     Dosage: DAILY DOSE 1 G
     Route: 042
     Dates: start: 20110112
  65. TATHION [Concomitant]
     Dosage: DAILY DOSE 200 MG
     Route: 042
     Dates: start: 20110112, end: 20110112
  66. DAIO-KANZO-TO [Concomitant]
     Indication: ABDOMINAL DISTENSION
     Dosage: 7.5 G, QD
     Route: 048
     Dates: start: 20101101
  67. MUCOSTA [Concomitant]
     Indication: GASTRITIS PROPHYLAXIS
     Dosage: 330 MG, QD
     Route: 048
     Dates: start: 20100101, end: 20110206
  68. LAXOBERON [Concomitant]
     Indication: CONSTIPATION
     Dosage: 15 GTT, QD
     Route: 048
     Dates: start: 20101127, end: 20110206
  69. LOXONIN [Concomitant]
     Dosage: 180 MG, QD
     Route: 048
     Dates: start: 20101112, end: 20101201
  70. ASCORBIC ACID [Concomitant]
     Indication: VITAMIN SUPPLEMENTATION
     Dosage: DAILY DOSE 2000 MG
     Route: 042
     Dates: start: 20110112
  71. ANEXATE [Concomitant]
     Indication: PREMEDICATION
     Dosage: 0.5 MG, QD
     Route: 042
     Dates: start: 20101122, end: 20101122
  72. TATHION [Concomitant]
     Indication: LIVER DISORDER
     Dosage: 100 MG, QD
     Route: 042
     Dates: start: 20101101
  73. VITAMEDIN [Concomitant]
     Dosage: 2 DF, QD
     Route: 042
     Dates: start: 20110112, end: 20110112
  74. LASIX [Concomitant]
     Dosage: 40 MG, QD
     Route: 042
     Dates: start: 20101101, end: 20101103
  75. SODIUM CHLORIDE [Concomitant]
     Dosage: 100 ML, UNK
     Route: 042
     Dates: start: 20101108, end: 20101114
  76. ADELAVIN-NO.9 [Concomitant]
     Dosage: DAILY DOSE 2 ML
     Route: 042
     Dates: start: 20110112
  77. DAI-KENCHU-TO [Concomitant]
     Indication: ABDOMINAL DISTENSION
     Dosage: 7.5 G, QD
     Route: 048
     Dates: start: 20101101, end: 20101215
  78. INCHIN-KO-TO [Concomitant]
     Indication: LIVER DISORDER
     Dosage: 7.5 G, QD
     Route: 048
     Dates: start: 20101101, end: 20101215

REACTIONS (6)
  - GENERAL PHYSICAL HEALTH DETERIORATION [None]
  - GASTRIC ULCER [None]
  - DEPRESSION [None]
  - STOMATITIS [None]
  - PALMAR-PLANTAR ERYTHRODYSAESTHESIA SYNDROME [None]
  - DEHYDRATION [None]
